FAERS Safety Report 23080979 (Version 1)
Quarter: 2023Q4

REPORT INFORMATION
  Report Type: Spontaneous
  Country: US (occurrence: US)
  Receive Date: 20231018
  Receipt Date: 20231018
  Transmission Date: 20240110
  Serious: Yes (Death, Other)
  Sender: FDA-Public Use
  Company Number: US-PFIZER INC-PV202300166870

PATIENT
  Age: 28 Year
  Sex: Male

DRUGS (6)
  1. ETOMIDATE [Suspect]
     Active Substance: ETOMIDATE
     Indication: Acute respiratory failure
     Dosage: UNK
     Route: 042
  2. ETOMIDATE [Suspect]
     Active Substance: ETOMIDATE
     Indication: Hypoxia
  3. ETOMIDATE [Suspect]
     Active Substance: ETOMIDATE
     Indication: Endotracheal intubation
  4. SUCCINYLCHOLINE [Suspect]
     Active Substance: SUCCINYLCHOLINE
     Indication: Acute respiratory failure
     Dosage: UNK
     Route: 042
  5. SUCCINYLCHOLINE [Suspect]
     Active Substance: SUCCINYLCHOLINE
     Indication: Hypoxia
  6. SUCCINYLCHOLINE [Suspect]
     Active Substance: SUCCINYLCHOLINE
     Indication: Endotracheal intubation

REACTIONS (4)
  - Cardiac arrest [Fatal]
  - Hyperthermia malignant [Fatal]
  - Hypotension [Fatal]
  - Off label use [Unknown]
